FAERS Safety Report 10070642 (Version 2)
Quarter: 2014Q2

REPORT INFORMATION
  Report Type: Spontaneous
  Country: US (occurrence: US)
  Receive Date: 20140410
  Receipt Date: 20140602
  Transmission Date: 20141212
  Serious: Yes (Disabling, Other)
  Sender: FDA-Public Use
  Company Number: US-JNJFOC-20140400151

PATIENT
  Age: 66 Year
  Sex: Female
  Weight: 72.58 kg

DRUGS (3)
  1. ELMIRON [Suspect]
     Indication: BLADDER OPERATION
     Dosage: BEGAN 8-10 YEARS AGO
     Route: 048
  2. ACYCLOVIR [Suspect]
     Indication: SKIN DISORDER
     Route: 065
     Dates: start: 2014
  3. VESICARE [Concomitant]
     Indication: HYPERTONIC BLADDER
     Route: 065

REACTIONS (11)
  - Disability [Unknown]
  - Nausea [Not Recovered/Not Resolved]
  - Dehydration [Recovered/Resolved]
  - Abnormal loss of weight [Not Recovered/Not Resolved]
  - Vomiting [Recovered/Resolved]
  - Fall [Not Recovered/Not Resolved]
  - Adverse event [Unknown]
  - Dizziness [Not Recovered/Not Resolved]
  - Vision blurred [Not Recovered/Not Resolved]
  - Confusional state [Not Recovered/Not Resolved]
  - Memory impairment [Not Recovered/Not Resolved]
